FAERS Safety Report 14334191 (Version 2)
Quarter: 2018Q4

REPORT INFORMATION
  Report Type: Spontaneous
  Country: GB (occurrence: GB)
  Receive Date: 20171228
  Receipt Date: 20181017
  Transmission Date: 20190204
  Serious: Yes (Other)
  Sender: FDA-Public Use
  Company Number: PHHY2017GB192694

PATIENT

DRUGS (2)
  1. TEGRETOL [Suspect]
     Active Substance: CARBAMAZEPINE
     Indication: EPILEPSY
     Dosage: UNK UNK, BID
     Route: 065
  2. LEVETIRACETAM. [Suspect]
     Active Substance: LEVETIRACETAM
     Indication: TONIC CONVULSION
     Dosage: 1 DF, BID
     Route: 065
     Dates: start: 2004

REACTIONS (17)
  - Loss of consciousness [Unknown]
  - Pyrexia [Unknown]
  - Personality disorder [Unknown]
  - Anxiety [Unknown]
  - Aggression [Unknown]
  - Tremor [Unknown]
  - Asthenia [Unknown]
  - Ill-defined disorder [Unknown]
  - Cerebral disorder [Unknown]
  - Panic disorder [Unknown]
  - Palpitations [Unknown]
  - Anger [Unknown]
  - Focal dyscognitive seizures [Unknown]
  - Seizure [Unknown]
  - Stress [Unknown]
  - Product quality issue [Unknown]
  - Condition aggravated [Unknown]
